FAERS Safety Report 10016533 (Version 1)
Quarter: 2014Q1

REPORT INFORMATION
  Report Type: Report from Study
  Country: TR (occurrence: TR)
  Receive Date: 20140317
  Receipt Date: 20140317
  Transmission Date: 20141002
  Serious: Yes (Other)
  Sender: FDA-Public Use
  Company Number: TR-BAXTER-2014BAX013786

PATIENT
  Sex: 0

DRUGS (3)
  1. IZOTONIK SODYUM KLOR?R PVC [Suspect]
     Indication: NEPHROPROTECTIVE THERAPY
     Dosage: 1 ML/KG/HR FOR 12 HOURS BEFORE AND 12 HOURS AFTER THE PROCEDURE
     Route: 042
  2. IOPROMIDE [Suspect]
     Indication: NEPHROPROTECTIVE THERAPY
     Route: 065
  3. N-ACETYLCYSTEINE [Suspect]
     Indication: NEPHROPROTECTIVE THERAPY
     Dosage: FOR 24 HOURS BEFORE AND 48 HOURS AFTER THE PROCEDURE
     Route: 048

REACTIONS (1)
  - Nephropathy toxic [Unknown]
